FAERS Safety Report 24558009 (Version 2)
Quarter: 2024Q4

REPORT INFORMATION
  Report Type: Report from Study
  Country: NL (occurrence: NL)
  Receive Date: 20241028
  Receipt Date: 20241105
  Transmission Date: 20250114
  Serious: Yes (Hospitalization, Other)
  Sender: ABBVIE
  Company Number: NL-ABBVIE-5962557

PATIENT
  Age: 71 Year
  Sex: Male

DRUGS (7)
  1. CARBIDOPA\LEVODOPA [Suspect]
     Active Substance: CARBIDOPA\LEVODOPA
     Indication: Parkinson^s disease
     Route: 050
  2. CARBIDOPA\LEVODOPA [Suspect]
     Active Substance: CARBIDOPA\LEVODOPA
     Dosage: MD:16.5ML, CD:4.0ML/H, ED:2.0ML?DURATION TEXT: REMAINS AT 24 HOURS
     Route: 050
     Dates: start: 20241008, end: 20241023
  3. CARBIDOPA\LEVODOPA [Suspect]
     Active Substance: CARBIDOPA\LEVODOPA
     Dosage: MD:15.5ML, CD:4.0ML/H, ED:2.0ML, END:2.0ML, CND:2.0ML/H ?DURATION TEXT: REMAINS AT 24 HOURS
     Route: 050
     Dates: start: 20241023
  4. FLORINEF ACETATE [Concomitant]
     Active Substance: FLUDROCORTISONE ACETATE
     Indication: Orthostatic hypotension
  5. POLYETHYLENE GLYCOLS [Concomitant]
     Active Substance: POLYETHYLENE GLYCOLS
     Indication: Abnormal faeces
  6. RIVASTIGMINE [Concomitant]
     Active Substance: RIVASTIGMINE
     Indication: Memory impairment
     Dosage: PATCH
  7. CLOZAPINE [Concomitant]
     Active Substance: CLOZAPINE
     Indication: Hallucination

REACTIONS (18)
  - Rehabilitation therapy [Not Recovered/Not Resolved]
  - Confusional state [Not Recovered/Not Resolved]
  - Stoma site irritation [Recovering/Resolving]
  - Stoma site erythema [Recovering/Resolving]
  - Freezing phenomenon [Not Recovered/Not Resolved]
  - Syncope [Not Recovered/Not Resolved]
  - On and off phenomenon [Not Recovered/Not Resolved]
  - Hospitalisation [Recovered/Resolved]
  - Hallucination, visual [Not Recovered/Not Resolved]
  - Memory impairment [Not Recovered/Not Resolved]
  - Urinary incontinence [Not Recovered/Not Resolved]
  - Blood pressure decreased [Not Recovered/Not Resolved]
  - Dyskinesia [Not Recovered/Not Resolved]
  - Fatigue [Recovering/Resolving]
  - Therapeutic product effect incomplete [Not Recovered/Not Resolved]
  - Stoma site discharge [Recovering/Resolving]
  - Back pain [Not Recovered/Not Resolved]
  - Bowel movement irregularity [Unknown]

NARRATIVE: CASE EVENT DATE: 20240101
